FAERS Safety Report 8534671-5 (Version None)
Quarter: 2012Q3

REPORT INFORMATION
  Report Type: 
  Country: None (occurrence: None)
  Receive Date: 20120724
  Receipt Date: 20120716
  Transmission Date: 20120928
  Serious: Yes (Death, Hospitalization)
  Sender: FDA-Public Use
  Company Number: US-GLAXOSMITHKLINE-A0936216A

PATIENT
  Age: 49 Year
  Sex: Female

DRUGS (4)
  1. GLUCOPHAGE [Concomitant]
  2. AVANDIA [Suspect]
     Indication: DIABETES MELLITUS
     Dosage: 2MG PER DAY
     Route: 048
     Dates: start: 20050801, end: 20071001
  3. TOPROL-XL [Concomitant]
  4. LOPRESSOR [Concomitant]

REACTIONS (4)
  - ATRIAL FIBRILLATION [None]
  - DEPRESSION [None]
  - CARDIAC FAILURE CONGESTIVE [None]
  - CARDIAC ARREST [None]
